FAERS Safety Report 9283521 (Version 1)
Quarter: 2013Q2

REPORT INFORMATION
  Report Type: Spontaneous
  Country: US (occurrence: US)
  Receive Date: 20130510
  Receipt Date: 20130510
  Transmission Date: 20140414
  Serious: No
  Sender: FDA-Public Use
  Company Number: US-GLAXOSMITHKLINE-A1014038A

PATIENT
  Age: 51 Year
  Sex: Female
  Weight: 45.5 kg

DRUGS (4)
  1. TYKERB [Suspect]
     Indication: BREAST CANCER METASTATIC
     Dosage: 1250MG PER DAY
     Route: 048
  2. KEPPRA [Concomitant]
  3. FISH OIL [Concomitant]
  4. CALCIUM + D [Concomitant]

REACTIONS (3)
  - Neuropathy peripheral [Unknown]
  - Dry skin [Unknown]
  - Alopecia [Unknown]
